FAERS Safety Report 13103315 (Version 1)
Quarter: 2017Q1

REPORT INFORMATION
  Report Type: Spontaneous
  Country: US (occurrence: US)
  Receive Date: 20170110
  Receipt Date: 20170110
  Transmission Date: 20170428
  Serious: No
  Sender: FDA-Public Use
  Company Number: US-009507513-1612USA007270

PATIENT
  Sex: Male

DRUGS (1)
  1. REMERON [Suspect]
     Active Substance: MIRTAZAPINE
     Route: 048

REACTIONS (1)
  - Drug hypersensitivity [Unknown]
